FAERS Safety Report 14119841 (Version 2)
Quarter: 2018Q1

REPORT INFORMATION
  Report Type: Spontaneous
  Country: US (occurrence: US)
  Receive Date: 20171024
  Receipt Date: 20180122
  Transmission Date: 20180508
  Serious: No
  Sender: FDA-Public Use
  Company Number: US-PFIZER INC-2017457144

PATIENT
  Age: 39 Year
  Sex: Female

DRUGS (1)
  1. XELJANZ XR [Suspect]
     Active Substance: TOFACITINIB CITRATE
     Indication: RHEUMATOID ARTHRITIS
     Dosage: 11 MG, DAILY (1 TABLET BY MOUTH DAILY)
     Route: 048
     Dates: start: 20170512

REACTIONS (5)
  - Joint stiffness [Unknown]
  - Memory impairment [Unknown]
  - Arthralgia [Unknown]
  - Drug dose omission [Unknown]
  - Intentional product misuse [Unknown]
